FAERS Safety Report 10527065 (Version 1)
Quarter: 2014Q4

REPORT INFORMATION
  Report Type: Spontaneous
  Country: US (occurrence: None)
  Receive Date: 20141016
  Receipt Date: 20141016
  Transmission Date: 20150528
  Serious: Yes (Other)
  Sender: FDA-Public Use
  Company Number: None

PATIENT
  Age: 73 Year
  Sex: Female
  Weight: 50.8 kg

DRUGS (5)
  1. DYSPORT [Suspect]
     Active Substance: ABOBOTULINUMTOXINA
     Indication: SKIN WRINKLING
     Dates: start: 20140613, end: 20140613
  2. OMEGA-3 ACIDS [Concomitant]
     Active Substance: OMEGA-3 FATTY ACIDS
  3. LEVOTHYROXINE [Concomitant]
     Active Substance: LEVOTHYROXINE
  4. DULOXETINE [Concomitant]
     Active Substance: DULOXETINE
  5. CLONAZEPAM. [Concomitant]
     Active Substance: CLONAZEPAM

REACTIONS (6)
  - Musculoskeletal stiffness [None]
  - Activities of daily living impaired [None]
  - Paralysis [None]
  - Arthralgia [None]
  - Asthenia [None]
  - Muscular weakness [None]

NARRATIVE: CASE EVENT DATE: 20140616
